FAERS Safety Report 9796073 (Version 1)
Quarter: 2014Q1

REPORT INFORMATION
  Report Type: Spontaneous
  Country: IT (occurrence: IT)
  Receive Date: 20140103
  Receipt Date: 20140103
  Transmission Date: 20141002
  Serious: Yes (Hospitalization)
  Sender: FDA-Public Use
  Company Number: IT-BRISTOL-MYERS SQUIBB COMPANY-19950732

PATIENT
  Age: 10 Year
  Sex: Female

DRUGS (1)
  1. GLUCOPHAGE TABS [Suspect]
     Dosage: 1DF:30X500MG FORM STRENGTH
     Route: 048
     Dates: start: 20130129, end: 20130129

REACTIONS (3)
  - Headache [Recovered/Resolved]
  - Vomiting [Recovered/Resolved]
  - Drug administration error [Recovered/Resolved]
